FAERS Safety Report 18306707 (Version 1)
Quarter: 2020Q3

REPORT INFORMATION
  Report Type: Spontaneous
  Country: HR (occurrence: HR)
  Receive Date: 20200924
  Receipt Date: 20200924
  Transmission Date: 20201103
  Serious: Yes (Other)
  Sender: FDA-Public Use
  Company Number: HR-PFIZER INC-2020368015

PATIENT
  Sex: Female

DRUGS (3)
  1. ZOLOFT [Suspect]
     Active Substance: SERTRALINE HYDROCHLORIDE
     Dosage: 1400 MG, 1X/DAY
     Route: 048
     Dates: start: 202008, end: 202008
  2. SANVAL [Suspect]
     Active Substance: ZOLPIDEM TARTRATE
     Dosage: 3 DF, 1X/DAY, DF=1 TABLET
     Route: 048
     Dates: start: 20200809, end: 20200809
  3. APAURIN [Concomitant]
     Active Substance: DIAZEPAM
     Dosage: UNK
     Route: 048

REACTIONS (5)
  - Intentional overdose [Unknown]
  - Confusional state [Unknown]
  - Agitation [Unknown]
  - Suicide attempt [Unknown]
  - Tachycardia [Unknown]

NARRATIVE: CASE EVENT DATE: 202008
